FAERS Safety Report 12188823 (Version 1)
Quarter: 2016Q1

REPORT INFORMATION
  Report Type: Spontaneous
  Country: JP (occurrence: JP)
  Receive Date: 20160317
  Receipt Date: 20160317
  Transmission Date: 20160526
  Serious: Yes (Life-Threatening, Other)
  Sender: FDA-Public Use
  Company Number: JP-ASTRAZENECA-2016SE28978

PATIENT
  Age: 39 Year
  Sex: Female

DRUGS (8)
  1. MEROPEN [Suspect]
     Active Substance: MEROPENEM
     Indication: SHUNT INFECTION
     Route: 041
     Dates: start: 20160303, end: 20160303
  2. SOLDEM 3A [Suspect]
     Active Substance: CARBOHYDRATES\POTASSIUM CHLORIDE\SODIUM CHLORIDE\SODIUM LACTATE
     Route: 041
     Dates: start: 20160303, end: 20160307
  3. ANHIBA [Concomitant]
     Active Substance: ACETAMINOPHEN
     Route: 054
  4. L-CARTIN FF [Concomitant]
     Active Substance: LEVOCARNITINE
     Route: 048
  5. ZYVOX [Suspect]
     Active Substance: LINEZOLID
     Route: 041
     Dates: start: 20160303, end: 20160307
  6. MEROPEN [Suspect]
     Active Substance: MEROPENEM
     Indication: MENINGITIS
     Route: 041
     Dates: start: 20160303, end: 20160303
  7. MAGMITT [Concomitant]
     Active Substance: MAGNESIUM OXIDE
  8. SODIUM VALPROATE [Concomitant]
     Active Substance: VALPROATE SODIUM
     Route: 048

REACTIONS (4)
  - Heart rate increased [Unknown]
  - Generalised erythema [Recovered/Resolved]
  - Blood pressure decreased [Recovered/Resolved]
  - Slow response to stimuli [Recovered/Resolved]

NARRATIVE: CASE EVENT DATE: 20160303
